FAERS Safety Report 12080635 (Version 1)
Quarter: 2016Q1

REPORT INFORMATION
  Report Type: Spontaneous
  Country: MX (occurrence: MX)
  Receive Date: 20160216
  Receipt Date: 20160216
  Transmission Date: 20160526
  Serious: Yes (Other)
  Sender: FDA-Public Use
  Company Number: MX-BAYER-2016-029481

PATIENT
  Age: 58 Year
  Sex: Female

DRUGS (3)
  1. BETAFERON [Concomitant]
     Active Substance: INTERFERON BETA-1B
  2. COPAXONE [Concomitant]
     Active Substance: GLATIRAMER ACETATE
  3. INTERFERON BETA - 1B [Suspect]
     Active Substance: INTERFERON BETA-1B
     Indication: MULTIPLE SCLEROSIS
     Dosage: 8 MIU, TIW
     Route: 058

REACTIONS (4)
  - Cerebral artery embolism [Recovering/Resolving]
  - Speech disorder [Recovering/Resolving]
  - Anxiety [Recovering/Resolving]
  - Product use issue [None]
